FAERS Safety Report 21134495 (Version 1)
Quarter: 2022Q3

REPORT INFORMATION
  Report Type: Spontaneous
  Country: ES (occurrence: ES)
  Receive Date: 20220726
  Receipt Date: 20220726
  Transmission Date: 20221027
  Serious: Yes (Other)
  Sender: FDA-Public Use
  Company Number: None

PATIENT
  Age: 57 Year
  Sex: Female
  Weight: 75 kg

DRUGS (1)
  1. KANJINTI [Suspect]
     Active Substance: TRASTUZUMAB-ANNS
     Indication: Breast cancer
     Dosage: UNK
     Route: 065
     Dates: start: 20220208, end: 20220208

REACTIONS (4)
  - Seizure [Recovered/Resolved]
  - Vomiting [Recovered/Resolved]
  - Hypertension [Recovered/Resolved]
  - Nausea [Recovered/Resolved]

NARRATIVE: CASE EVENT DATE: 20220208
